FAERS Safety Report 9736407 (Version 5)
Quarter: 2014Q2

REPORT INFORMATION
  Report Type: Spontaneous
  Country: BE (occurrence: BE)
  Receive Date: 20131206
  Receipt Date: 20140401
  Transmission Date: 20141212
  Serious: Yes (Other)
  Sender: FDA-Public Use
  Company Number: BE-CELGENEUS-013-50794-13114824

PATIENT
  Age: 70 Year
  Sex: Male

DRUGS (8)
  1. VIDAZA [Suspect]
     Indication: MYELODYSPLASTIC SYNDROME
     Dosage: 75 MILLIGRAM/SQ. METER
     Route: 041
     Dates: start: 20120619
  2. VIDAZA [Suspect]
     Dosage: 75 MILLIGRAM/SQ. METER
     Route: 048
     Dates: end: 20131029
  3. RAMIPRIL [Concomitant]
     Indication: HYPERTENSION
     Route: 048
  4. T4 [Concomitant]
     Indication: HYPERTHYROIDISM
     Route: 048
  5. PANTOMED [Concomitant]
     Indication: COLITIS ULCERATIVE
     Route: 048
  6. EXACYL [Concomitant]
     Indication: HAEMORRHAGE
     Route: 048
  7. METHYLPREDNISOLONE [Concomitant]
     Indication: DERMATITIS ATOPIC
     Route: 048
  8. DIAMICRON [Concomitant]
     Indication: DIABETES MELLITUS
     Route: 048

REACTIONS (1)
  - Cystitis haemorrhagic [Recovered/Resolved]
